FAERS Safety Report 10858655 (Version 1)
Quarter: 2015Q1

REPORT INFORMATION
  Report Type: Spontaneous
  Country: US (occurrence: US)
  Receive Date: 20150223
  Receipt Date: 20150223
  Transmission Date: 20150721
  Serious: Yes (Other)
  Sender: FDA-Public Use
  Company Number: US-CELGENEUS-163-21880-14070620

PATIENT
  Age: 61 Year
  Sex: Female

DRUGS (20)
  1. PACKED RED BLOOD CELL COUNT [Concomitant]
     Dosage: 2 UNITS
     Route: 041
     Dates: start: 20140627, end: 20140627
  2. METOPROLOL/HCTZ [Concomitant]
     Active Substance: HYDROCHLOROTHIAZIDE\METOPROLOL
     Indication: PRODUCT USED FOR UNKNOWN INDICATION
     Dosage: 50/25MG
     Route: 048
  3. CALCIUM [Concomitant]
     Active Substance: CALCIUM
     Indication: PRODUCT USED FOR UNKNOWN INDICATION
     Route: 048
  4. FOLIC ACID. [Concomitant]
     Active Substance: FOLIC ACID
     Indication: PRODUCT USED FOR UNKNOWN INDICATION
     Route: 048
  5. REVLIMID [Suspect]
     Active Substance: LENALIDOMIDE
     Indication: MYELODYSPLASTIC SYNDROME
     Dosage: 10 MILLIGRAM
     Route: 048
     Dates: start: 20140605
  6. WARFARIN [Concomitant]
     Active Substance: WARFARIN
     Indication: PRODUCT USED FOR UNKNOWN INDICATION
     Route: 048
  7. VESICARE [Concomitant]
     Active Substance: SOLIFENACIN SUCCINATE
     Indication: PRODUCT USED FOR UNKNOWN INDICATION
     Route: 048
  8. PACKED RED BLOOD CELL COUNT [Concomitant]
     Dosage: 2 UNITS
     Route: 041
     Dates: start: 20140313, end: 20140313
  9. PROTONIX [Concomitant]
     Active Substance: PANTOPRAZOLE SODIUM
     Indication: PRODUCT USED FOR UNKNOWN INDICATION
     Route: 048
  10. PACKED RED BLOOD CELL COUNT [Concomitant]
     Dosage: 2 UNITS
     Route: 041
     Dates: start: 20130626, end: 20130626
  11. PACKED RED BLOOD CELL COUNT [Concomitant]
     Dosage: 2 UNITS
     Route: 041
     Dates: start: 20140108, end: 20140108
  12. MULTIVITAMINS [Concomitant]
     Active Substance: VITAMINS
     Indication: PRODUCT USED FOR UNKNOWN INDICATION
     Route: 048
  13. VITAMIN B12 [Concomitant]
     Active Substance: CYANOCOBALAMIN
     Indication: PRODUCT USED FOR UNKNOWN INDICATION
     Route: 048
  14. VITAMIN C [Concomitant]
     Active Substance: ASCORBIC ACID
     Indication: PRODUCT USED FOR UNKNOWN INDICATION
     Route: 048
  15. PACKED RED BLOOD CELL COUNT [Concomitant]
     Indication: FULL BLOOD COUNT DECREASED
     Dosage: 2 UNITS
     Route: 041
     Dates: start: 20130424, end: 20130424
  16. PACKED RED BLOOD CELL COUNT [Concomitant]
     Dosage: 2 UNITS
     Route: 041
     Dates: start: 20140224, end: 20140224
  17. SIMVASTATIN. [Concomitant]
     Active Substance: SIMVASTATIN
     Indication: PRODUCT USED FOR UNKNOWN INDICATION
     Route: 048
  18. PACKED RED BLOOD CELL COUNT [Concomitant]
     Dosage: 2 UNITS
     Route: 041
     Dates: start: 20130820, end: 20130820
  19. PACKED RED BLOOD CELL COUNT [Concomitant]
     Dosage: 2 UNITS
     Route: 041
     Dates: start: 20131028, end: 20131028
  20. PACKED RED BLOOD CELL COUNT [Concomitant]
     Dosage: 2 UNITS
     Route: 041
     Dates: start: 20140507, end: 20140507

REACTIONS (1)
  - Full blood count decreased [Recovered/Resolved]

NARRATIVE: CASE EVENT DATE: 20140627
